FAERS Safety Report 5856922-8 (Version None)
Quarter: 2008Q3

REPORT INFORMATION
  Report Type: 
  Country: None (occurrence: None)
  Receive Date: 20080821
  Receipt Date: 20080821
  Transmission Date: 20090109
  Serious: No
  Sender: FDA-Public Use
  Company Number: None

PATIENT
  Sex: Female
  Weight: 76.2043 kg

DRUGS (1)
  1. COREG GENERIC 6.25MG [Suspect]
     Indication: HYPERTENSION
     Dosage: 6.25 1 DAY PO
     Route: 048

REACTIONS (3)
  - DYSPHAGIA [None]
  - HYPOAESTHESIA ORAL [None]
  - LIP SWELLING [None]
